FAERS Safety Report 23649768 (Version 1)
Quarter: 2024Q1

REPORT INFORMATION
  Report Type: Spontaneous
  Country: US (occurrence: US)
  Receive Date: 20240319
  Receipt Date: 20240319
  Transmission Date: 20240410
  Serious: No
  Sender: FDA-Public Use
  Company Number: US-SANDOZ-SDZ2024US029872

PATIENT
  Sex: Female

DRUGS (1)
  1. METFORMIN [Suspect]
     Active Substance: METFORMIN HYDROCHLORIDE
     Indication: Hidradenitis
     Dosage: 500 MG, QD
     Route: 065

REACTIONS (4)
  - Anxiety disorder [Unknown]
  - Asthma [Unknown]
  - Anaemia [Unknown]
  - Eczema [Unknown]
